FAERS Safety Report 18595585 (Version 2)
Quarter: 2021Q1

REPORT INFORMATION
  Report Type: Spontaneous
  Country: US (occurrence: US)
  Receive Date: 20201209
  Receipt Date: 20210126
  Transmission Date: 20210419
  Serious: No
  Sender: FDA-Public Use
  Company Number: US-PFIZER INC-2020479833

PATIENT
  Age: 57 Year
  Sex: Female
  Weight: 88 kg

DRUGS (2)
  1. GENOTROPIN [Suspect]
     Active Substance: SOMATROPIN
     Indication: GASTROINTESTINAL DISORDER
     Dosage: 0.2 MG, DAILY
     Dates: start: 2017
  2. GENOTROPIN [Suspect]
     Active Substance: SOMATROPIN
     Indication: DEPRESSION

REACTIONS (7)
  - Device information output issue [Unknown]
  - Poor quality device used [Unknown]
  - Off label use [Unknown]
  - Therapeutic response unexpected [Unknown]
  - Device use issue [Unknown]
  - Drug effective for unapproved indication [Unknown]
  - Device issue [Unknown]

NARRATIVE: CASE EVENT DATE: 2017
